FAERS Safety Report 11331144 (Version 1)
Quarter: 2015Q3

REPORT INFORMATION
  Report Type: Spontaneous
  Country: US (occurrence: None)
  Receive Date: 20150730
  Receipt Date: 20150730
  Transmission Date: 20151125
  Serious: No
  Sender: FDA-Public Use
  Company Number: None

PATIENT
  Age: 58 Year
  Sex: Female
  Weight: 96.62 kg

DRUGS (4)
  1. VITAMIN B12 [Concomitant]
     Active Substance: CYANOCOBALAMIN
  2. MULTI VITAMIN [Concomitant]
     Active Substance: VITAMINS
  3. CARBAMAZEPINE 100 MG/5 ML ORAL SUSPENSION [Suspect]
     Active Substance: CARBAMAZEPINE
     Indication: BIPOLAR DISORDER
     Route: 048
     Dates: start: 20150527
  4. CENTRUM SILVER 50+ [Concomitant]

REACTIONS (3)
  - Tremor [None]
  - Dry mouth [None]
  - Nausea [None]

NARRATIVE: CASE EVENT DATE: 20150528
